FAERS Safety Report 11824253 (Version 1)
Quarter: 2015Q4

REPORT INFORMATION
  Report Type: Spontaneous
  Country: US (occurrence: US)
  Receive Date: 20151210
  Receipt Date: 20151210
  Transmission Date: 20160305
  Serious: No
  Sender: FDA-Public Use
  Company Number: US-LPDUSPRD-20150795

PATIENT
  Age: 48 Year
  Sex: Female

DRUGS (2)
  1. VITAMIN B12 [Concomitant]
     Active Substance: CYANOCOBALAMIN
     Dosage: DOSE UNKNOWN
     Route: 051
  2. VENOFER [Suspect]
     Active Substance: IRON SUCROSE
     Dosage: NOT PROVIDED
     Route: 065

REACTIONS (5)
  - Malaise [Unknown]
  - Feeling abnormal [Unknown]
  - Dizziness [Unknown]
  - Serum ferritin decreased [Unknown]
  - Off label use [Unknown]
